FAERS Safety Report 5587126-4 (Version None)
Quarter: 2008Q1

REPORT INFORMATION
  Report Type: 
  Country: None (occurrence: None)
  Receive Date: 20080107
  Receipt Date: 20071226
  Transmission Date: 20080703
  Serious: Yes (Life-Threatening)
  Sender: FDA-Public Use
  Company Number: 2007JP001777

PATIENT
  Age: 81 Year
  Sex: Female
  Weight: 48 kg

DRUGS (13)
  1. VESICARE [Suspect]
     Dosage: 5 MG, UID/QD, ORAL, ORAL
     Route: 048
     Dates: start: 20070101, end: 20070101
  2. VESICARE [Suspect]
     Dosage: 5 MG, UID/QD, ORAL, ORAL
     Route: 048
     Dates: start: 20070228, end: 20070328
  3. SPIROPENT (CLENBUTEROL HYDROCHLORIDE) TABLET [Concomitant]
  4. AMLODIN (AMLODIPINE BESILATE) TABLET [Concomitant]
  5. ALFAROL (ALFACALCIDOL) TABLET [Concomitant]
  6. GASPORT TABLET [Concomitant]
  7. STROCAIN (OXETACAINE) TABLET [Concomitant]
  8. SELBEX (TEPRENONE) TABLET [Concomitant]
  9. MARZULENE S (LEVOGLUTAMIDE, SODIUM GUALENATE) GRANULE [Concomitant]
  10. MEILAX (ETHYL LOFLAZEPATE) TABLET [Concomitant]
  11. CEFAMEZIN (CEFAZOLIN) INJECTION [Concomitant]
  12. VANCOMYCIN [Concomitant]
  13. TARGOCID [Concomitant]

REACTIONS (3)
  - CARDIAC FAILURE [None]
  - SYNCOPE [None]
  - TORSADE DE POINTES [None]
